FAERS Safety Report 10235187 (Version 1)
Quarter: 2014Q2

REPORT INFORMATION
  Report Type: Spontaneous
  Country: FR (occurrence: FR)
  Receive Date: 20140613
  Receipt Date: 20140613
  Transmission Date: 20141212
  Serious: Yes (Life-Threatening)
  Sender: FDA-Public Use
  Company Number: FR-ASTRAZENECA-2014SE40893

PATIENT
  Age: 6167 Day
  Sex: Male

DRUGS (2)
  1. XEROQUEL [Suspect]
     Indication: MAJOR DEPRESSION
     Route: 048
     Dates: start: 20131127
  2. XEROQUEL [Suspect]
     Indication: MAJOR DEPRESSION
     Route: 048

REACTIONS (2)
  - Suicide attempt [Recovered/Resolved]
  - Dissociative fugue [Unknown]
